FAERS Safety Report 5867365-5 (Version None)
Quarter: 2008Q3

REPORT INFORMATION
  Report Type: 
  Country: None (occurrence: None)
  Receive Date: 20080902
  Receipt Date: 20080825
  Transmission Date: 20090109
  Serious: Yes (Hospitalization, Other)
  Sender: FDA-Public Use
  Company Number: PHHY2008FR17221

PATIENT
  Age: 78 Year
  Sex: Male

DRUGS (9)
  1. TEGRETOL [Suspect]
     Dosage: 200 MG, TID
  2. TEGRETOL [Suspect]
     Dosage: 400 MG, TID
     Dates: end: 20080729
  3. ASPIRIN [Suspect]
     Dosage: 75MG/DAY
  4. MONO-TILDIEM - SLOW RELEASE [Concomitant]
  5. ALDACTAZINE [Concomitant]
  6. PRAXILENE [Concomitant]
  7. TAHOR [Concomitant]
  8. RAMIPRIL [Concomitant]
  9. ZOXON [Concomitant]

REACTIONS (11)
  - APHASIA [None]
  - DIZZINESS [None]
  - DRUG ADMINISTRATION ERROR [None]
  - DRUG DISPENSING ERROR [None]
  - DRUG LEVEL INCREASED [None]
  - GAIT DISTURBANCE [None]
  - MALAISE [None]
  - MUSCULAR WEAKNESS [None]
  - MYOCLONUS [None]
  - SPEECH DISORDER [None]
  - TREMOR [None]
